FAERS Safety Report 25124173 (Version 1)
Quarter: 2025Q1

REPORT INFORMATION
  Report Type: Spontaneous
  Country: CN (occurrence: CN)
  Receive Date: 20250326
  Receipt Date: 20250326
  Transmission Date: 20250409
  Serious: Yes (Hospitalization, Other)
  Sender: PFIZER
  Company Number: CN-PFIZER INC-PV202500034998

PATIENT
  Age: 75 Year
  Sex: Male
  Weight: 67 kg

DRUGS (8)
  1. VORICONAZOLE [Suspect]
     Active Substance: VORICONAZOLE
     Indication: Aspergillus infection
     Dosage: 0.2 G, 2X/DAY
     Route: 041
     Dates: start: 20250307, end: 20250320
  2. CEFOPERAZONE SODIUM\SULBACTAM SODIUM [Suspect]
     Active Substance: CEFOPERAZONE SODIUM\SULBACTAM SODIUM
     Indication: Infection
     Dosage: 4 G, 2X/DAY
     Route: 041
     Dates: start: 20250318, end: 20250321
  3. COLISTIN SULFATE [Suspect]
     Active Substance: COLISTIN SULFATE
     Indication: Bacterial infection
     Dosage: 500000 IU, 2X/DAY
     Route: 041
     Dates: start: 20250318, end: 20250320
  4. CASPOFUNGIN ACETATE [Suspect]
     Active Substance: CASPOFUNGIN ACETATE
     Indication: Fungal infection
     Dosage: 50 MG, 2X/DAY
     Route: 041
     Dates: start: 20250318, end: 20250319
  5. SODIUM CHLORIDE [Concomitant]
     Active Substance: SODIUM CHLORIDE
     Indication: Vehicle solution use
     Dosage: 50 ML, 2X/DAY (VORICONAZOLE)
     Route: 041
     Dates: start: 20250307, end: 20250320
  6. SODIUM CHLORIDE [Concomitant]
     Active Substance: SODIUM CHLORIDE
     Dosage: 50 ML, 2X/DAY (CASPOFUNGIN ACETATE)
     Route: 041
     Dates: start: 20250318, end: 20250319
  7. SODIUM CHLORIDE [Concomitant]
     Active Substance: SODIUM CHLORIDE
     Dosage: 50 ML, 2X/DAY (CEFOPERAZONE AND SULBACTAM SODIUM)
     Route: 041
     Dates: start: 20250318, end: 20250321
  8. DEXTROSE [Concomitant]
     Active Substance: DEXTROSE MONOHYDRATE
     Indication: Vehicle solution use
     Dosage: 50 ML, 2X/DAY
     Route: 041
     Dates: start: 20250318, end: 20250320

REACTIONS (3)
  - Delirium [Not Recovered/Not Resolved]
  - Drug level increased [Not Recovered/Not Resolved]
  - Restlessness [Not Recovered/Not Resolved]

NARRATIVE: CASE EVENT DATE: 20250319
